FAERS Safety Report 23485926 (Version 1)
Quarter: 2024Q1

REPORT INFORMATION
  Report Type: Spontaneous
  Country: GB (occurrence: GB)
  Receive Date: 20240206
  Receipt Date: 20240206
  Transmission Date: 20240410
  Serious: No
  Sender: FDA-Public Use
  Company Number: None

PATIENT
  Age: 73 Year
  Sex: Female
  Weight: 85 kg

DRUGS (6)
  1. EZETIMIBE [Suspect]
     Active Substance: EZETIMIBE
     Indication: Product used for unknown indication
     Dosage: 10 MILLIGRAM, OD, TAKE ONE TABLET ONCE A DAY, TABLET
     Route: 065
     Dates: start: 20230628
  2. BEMPEDOIC ACID [Suspect]
     Active Substance: BEMPEDOIC ACID
     Indication: Product used for unknown indication
     Dosage: 180 MILLIGRAM, OD, (AMBER 2) ONE TABLET TO BE TAKEN ONCE A DAY
     Route: 065
     Dates: start: 20230621
  3. AMITRIPTYLINE HYDROCHLORIDE [Concomitant]
     Active Substance: AMITRIPTYLINE HYDROCHLORIDE
     Indication: Product used for unknown indication
     Dosage: UNK, TAKE ONE TO TWO AT NIGHT
     Route: 065
     Dates: start: 20220628
  4. LEVOTHYROXINE [Concomitant]
     Active Substance: LEVOTHYROXINE\LEVOTHYROXINE SODIUM
     Indication: Product used for unknown indication
     Dosage: UNK, QD, TAKE ONE EACH MORNING, TOTAL DOSE 125MCG
     Route: 065
     Dates: start: 20220628
  5. OMEPRAZOLE [Concomitant]
     Active Substance: OMEPRAZOLE
     Indication: Product used for unknown indication
     Dosage: UNK,TAKE ONE CAPSULES DAILY AS DIRECTED BY GASTROEN...
     Route: 065
     Dates: start: 20220628
  6. TOPIRAMATE [Concomitant]
     Active Substance: TOPIRAMATE
     Indication: Product used for unknown indication
     Dosage: UNK, QD, TAKE ONE DAILY AS DIRECTED
     Route: 065
     Dates: start: 20220628

REACTIONS (3)
  - Abdominal distension [Unknown]
  - Flatulence [Recovering/Resolving]
  - Abdominal pain [Recovering/Resolving]
